FAERS Safety Report 14320206 (Version 1)
Quarter: 2017Q4

REPORT INFORMATION
  Report Type: Spontaneous
  Country: US (occurrence: US)
  Receive Date: 20171222
  Receipt Date: 20171222
  Transmission Date: 20180321
  Serious: No
  Sender: FDA-Public Use
  Company Number: US-TEVA-2017-US-835225

PATIENT
  Age: 31 Year
  Sex: Female

DRUGS (4)
  1. OXYCODONE HYDROCHLORIDE. [Suspect]
     Active Substance: OXYCODONE HYDROCHLORIDE
     Indication: POST TREATMENT LYME DISEASE SYNDROME
     Route: 065
  2. CITALOPRAM [Concomitant]
     Active Substance: CITALOPRAM HYDROBROMIDE
     Indication: POST TREATMENT LYME DISEASE SYNDROME
     Route: 065
  3. CLONAZEPAM. [Concomitant]
     Active Substance: CLONAZEPAM
     Indication: POST TREATMENT LYME DISEASE SYNDROME
     Route: 065
  4. FENTANYL. [Suspect]
     Active Substance: FENTANYL
     Indication: POST TREATMENT LYME DISEASE SYNDROME
     Route: 062

REACTIONS (1)
  - Constipation [Unknown]
